FAERS Safety Report 16261235 (Version 1)
Quarter: 2019Q2

REPORT INFORMATION
  Report Type: Spontaneous
  Country: US (occurrence: US)
  Receive Date: 20190501
  Receipt Date: 20190501
  Transmission Date: 20190711
  Serious: No
  Sender: FDA-Public Use
  Company Number: US-GALDERMA-US18037302

PATIENT
  Age: 43 Year
  Sex: Female

DRUGS (8)
  1. PROACTIV GREEN TEA MOISTURIZER [Concomitant]
     Active Substance: COSMETICS
     Route: 061
     Dates: start: 20180810, end: 20180816
  2. PROACTIV SKIN PURIFYING MASK [Concomitant]
     Active Substance: SULFUR
     Route: 061
     Dates: start: 20180810, end: 20180816
  3. PROACTIV ADVANCED DAILY OIL CONTROL [Concomitant]
     Active Substance: SALICYLIC ACID
     Route: 061
     Dates: start: 20180810, end: 20180816
  4. PROACTIV RENEWING CLEANSER [Concomitant]
     Active Substance: BENZOYL PEROXIDE
     Route: 061
     Dates: start: 20180810, end: 20180816
  5. PROACTIV REVITALIZING TONER [Concomitant]
     Active Substance: COSMETICS
     Route: 061
     Dates: start: 20180810, end: 20180816
  6. PROACTIV MD DEEP CLEANSING FACE WASH [Concomitant]
     Active Substance: COSMETICS
     Route: 061
     Dates: start: 20180810, end: 20180816
  7. PROACTIV MD ADAPALENE ACNE TREATMENT [Suspect]
     Active Substance: ADAPALENE
     Indication: PRODUCT USED FOR UNKNOWN INDICATION
     Dosage: 0.1%
     Route: 061
  8. PROACTIV REPAIRING TREATMENT [Concomitant]
     Active Substance: BENZOYL PEROXIDE
     Route: 061
     Dates: start: 20180810, end: 20180816

REACTIONS (5)
  - Overdose [Recovered/Resolved]
  - Acne [Recovered/Resolved]
  - Pruritus [Recovered/Resolved]
  - Inappropriate schedule of product administration [Recovered/Resolved]
  - Dry skin [Recovered/Resolved]

NARRATIVE: CASE EVENT DATE: 20180810
